FAERS Safety Report 10216863 (Version 1)
Quarter: 2014Q2

REPORT INFORMATION
  Report Type: Spontaneous
  Country: US (occurrence: US)
  Receive Date: 20140604
  Receipt Date: 20140604
  Transmission Date: 20141212
  Serious: No
  Sender: FDA-Public Use
  Company Number: US-GILEAD-2014-0104164

PATIENT
  Sex: Female

DRUGS (5)
  1. RANEXA [Suspect]
     Indication: PRODUCT USED FOR UNKNOWN INDICATION
     Dosage: 1000 MG, BID
     Route: 065
     Dates: start: 20140531
  2. RANEXA [Suspect]
     Dosage: 500 MG, BID
     Route: 065
     Dates: start: 2013, end: 20140530
  3. DILTIAZEM [Concomitant]
  4. ZEBETA [Concomitant]
  5. LASIX                              /00032601/ [Concomitant]

REACTIONS (4)
  - Heart rate increased [Unknown]
  - Heart rate decreased [Unknown]
  - Flushing [Unknown]
  - Headache [Unknown]
